FAERS Safety Report 6269753-4 (Version None)
Quarter: 2009Q3

REPORT INFORMATION
  Report Type: 
  Country: None (occurrence: None)
  Receive Date: 20090716
  Receipt Date: 20090710
  Transmission Date: 20100115
  Serious: Yes (Death, Hospitalization)
  Sender: FDA-Public Use
  Company Number: IT-ASTRAZENECA-2009SE04469

PATIENT
  Age: 730 Month
  Sex: Female

DRUGS (3)
  1. MEROPENEM [Suspect]
     Route: 042
  2. SOLIRIS [Suspect]
     Indication: PAROXYSMAL NOCTURNAL HAEMOGLOBINURIA
     Dosage: 10 MG PER ML DURING INITIATION PHASE OF CLINICAL TRIAL.
     Route: 042
  3. SOLIRIS [Suspect]
     Route: 042
     Dates: end: 20090609

REACTIONS (2)
  - CARDIAC FAILURE ACUTE [None]
  - RESPIRATORY FAILURE [None]
